FAERS Safety Report 7322983-2 (Version None)
Quarter: 2011Q1

REPORT INFORMATION
  Report Type: 
  Country: None (occurrence: None)
  Receive Date: 20110301
  Receipt Date: 20100124
  Transmission Date: 20110831
  Serious: Yes (Death, Other)
  Sender: FDA-Public Use
  Company Number: US-BAYER-201012028NA

PATIENT
  Sex: Female
  Weight: 48.98 kg

DRUGS (11)
  1. GLUCOTROL [Concomitant]
     Indication: PRODUCT USED FOR UNKNOWN INDICATION
     Dosage: 10 MG, BID
     Route: 048
  2. SOLU-MEDROL [Concomitant]
  3. DOBUTAMINE HCL [Concomitant]
     Indication: CORONARY ARTERY BYPASS
     Dosage: UNK
     Route: 042
     Dates: start: 20020222
  4. SUFENTANIL CITRATE [Concomitant]
     Indication: CORONARY ARTERY BYPASS
     Dosage: 50 MCG
     Dates: start: 20020222, end: 20020222
  5. NORVASC [Concomitant]
     Indication: CORONARY ARTERY BYPASS
     Dosage: 5 MG/D, UNK
     Route: 048
  6. NITROGLYCERIN [Concomitant]
     Indication: CORONARY ARTERY BYPASS
     Dosage: 0.2 MG/24HR, UNK
     Route: 062
  7. UNIVASC [Concomitant]
     Indication: CORONARY ARTERY BYPASS
     Dosage: 15 MG/D, BID
     Route: 048
  8. SPIRONOLACTONE [Concomitant]
     Indication: PRODUCT USED FOR UNKNOWN INDICATION
     Dosage: 25 MG/D, UNK
     Route: 048
  9. ASPIRIN [Concomitant]
     Indication: CORONARY ARTERY BYPASS
     Dosage: 81 MG/D, UNK
     Route: 048
  10. TOPROL-XL [Concomitant]
     Indication: CORONARY ARTERY BYPASS
     Dosage: 100 MG/D, UNK
     Route: 048
  11. TRASYLOL [Suspect]
     Indication: CORONARY ARTERY BYPASS
     Dosage: 100 ML FOLLOWED BY MAINTENANCE DRIP OF 25 ML/HOUR
     Route: 042
     Dates: start: 20020222, end: 20020222

REACTIONS (12)
  - RENAL FAILURE [None]
  - UNEVALUABLE EVENT [None]
  - MULTI-ORGAN FAILURE [None]
  - RENAL INJURY [None]
  - RENAL IMPAIRMENT [None]
  - ANXIETY [None]
  - FEAR [None]
  - PAIN [None]
  - DEATH [None]
  - EMOTIONAL DISTRESS [None]
  - STRESS [None]
  - INJURY [None]
